FAERS Safety Report 4335829-1 (Version None)
Quarter: 2004Q2

REPORT INFORMATION
  Report Type: 
  Country: None (occurrence: None)
  Receive Date: 20040405
  Receipt Date: 20040322
  Transmission Date: 20050107
  Serious: No
  Sender: FDA-Public Use
  Company Number: 04P-008-0254417-00

PATIENT
  Age: 8 Week
  Sex: Female

DRUGS (1)
  1. FGF TABLETS (FERROUS SULFATE/FOLIC ACID) (FERROUS SULFATE/FOLIC ACID) [Suspect]
     Dates: end: 20040201

REACTIONS (8)
  - ABDOMINAL DISTENSION [None]
  - ABDOMINAL PAIN UPPER [None]
  - BODY TEMPERATURE INCREASED [None]
  - DRUG EXPOSURE VIA BREAST MILK [None]
  - FLATULENCE [None]
  - LETHARGY [None]
  - MALAISE [None]
  - PETIT MAL EPILEPSY [None]
